FAERS Safety Report 24413683 (Version 1)
Quarter: 2024Q4

REPORT INFORMATION
  Report Type: Spontaneous
  Country: GB (occurrence: GB)
  Receive Date: 20241008
  Receipt Date: 20241008
  Transmission Date: 20250114
  Serious: Yes (Other)
  Sender: BOEHRINGER INGELHEIM
  Company Number: GB-MHRA-TPP28581508C7323768YC1728058322237

PATIENT
  Age: 72 Year
  Sex: Female
  Weight: 55 kg

DRUGS (10)
  1. SPIRIVA [Suspect]
     Active Substance: TIOTROPIUM BROMIDE MONOHYDRATE
     Indication: Ill-defined disorder
     Dosage: INHALE,?18MICROGRAM INHALATION POWDER CAPSULES (BOEHRINGER INGELHEIM LTD)
     Route: 055
  2. DOXYCYCLINE [Concomitant]
     Active Substance: DOXYCYCLINE
     Indication: Ill-defined disorder
     Dosage: TWO NOW THEN ONE DAILY (RESCUE PACK)
     Dates: start: 20240823, end: 20240830
  3. PREDNISOLONE [Concomitant]
     Active Substance: PREDNISOLONE
     Indication: Ill-defined disorder
     Dosage: TAKE REDUCING COURSE. TAKE EIGHT TABLETS
     Dates: start: 20240823, end: 20241002
  4. ASPIRIN [Concomitant]
     Active Substance: ASPIRIN
     Indication: Ill-defined disorder
     Dosage: WITH OR AFTER FOOD
     Dates: start: 20240327
  5. ATORVASTATIN [Concomitant]
     Active Substance: ATORVASTATIN
     Indication: Ill-defined disorder
     Dates: start: 20240327
  6. FEXOFENADINE [Concomitant]
     Active Substance: FEXOFENADINE HYDROCHLORIDE
     Indication: Ill-defined disorder
     Dates: start: 20240327
  7. FLUTICASONE FUROATE [Concomitant]
     Active Substance: FLUTICASONE FUROATE
     Indication: Ill-defined disorder
     Route: 055
     Dates: start: 20240327
  8. ALBUTEROL [Concomitant]
     Active Substance: ALBUTEROL
     Indication: Ill-defined disorder
     Route: 055
     Dates: start: 20240327
  9. FLUTICASONE PROPIONATE\SALMETEROL XINAFOATE [Concomitant]
     Active Substance: FLUTICASONE PROPIONATE\SALMETEROL XINAFOATE
     Indication: Ill-defined disorder
     Dosage: INHALE 1 PUFF ONCE OR TWICE DAILY
     Route: 055
     Dates: start: 20240712, end: 20240823
  10. INCRUSE ELLIPTA [Concomitant]
     Active Substance: UMECLIDINIUM BROMIDE
     Indication: Ill-defined disorder
     Route: 055
     Dates: start: 20240823, end: 20241004

REACTIONS (3)
  - Asthma [Unknown]
  - Cough [Recovered/Resolved]
  - Dyspnoea [Recovered/Resolved]
